FAERS Safety Report 21270161 (Version 1)
Quarter: 2022Q3

REPORT INFORMATION
  Report Type: Spontaneous
  Country: JP (occurrence: JP)
  Receive Date: 20220830
  Receipt Date: 20220830
  Transmission Date: 20221027
  Serious: No
  Sender: FDA-Public Use
  Company Number: JP-PFIZER INC-202201091312

PATIENT
  Age: 60 Year
  Sex: Female

DRUGS (2)
  1. PAXLOVID [Suspect]
     Active Substance: NIRMATRELVIR\RITONAVIR
     Indication: COVID-19 treatment
     Dosage: UNK
     Route: 048
     Dates: start: 20220812, end: 20220816
  2. AZELNIDIPINE\OLMESARTAN MEDOXOMIL [Suspect]
     Active Substance: AZELNIDIPINE\OLMESARTAN MEDOXOMIL
     Dosage: UNK
     Route: 048
     Dates: start: 202004, end: 20220812

REACTIONS (8)
  - Dysgeusia [Recovered/Resolved]
  - Decreased appetite [Recovered/Resolved]
  - Pruritus [Recovered/Resolved]
  - Blister [Recovered/Resolved]
  - Skin weeping [Recovered/Resolved]
  - Scratch [Recovered/Resolved]
  - Erythema [Recovered/Resolved]
  - Contraindicated product administered [Unknown]

NARRATIVE: CASE EVENT DATE: 20220812
